FAERS Safety Report 14280985 (Version 1)
Quarter: 2017Q4

REPORT INFORMATION
  Report Type: Spontaneous
  Country: US (occurrence: US)
  Receive Date: 20171213
  Receipt Date: 20171213
  Transmission Date: 20180321
  Serious: No
  Sender: FDA-Public Use
  Company Number: US-GLAXOSMITHKLINE-US2017GSK189578

PATIENT
  Sex: Female

DRUGS (17)
  1. SYNTHROID [Concomitant]
     Active Substance: LEVOTHYROXINE SODIUM
     Indication: THYROID DISORDER
     Dosage: 0.88 MG, 1D
     Route: 048
     Dates: start: 1973
  2. ALLEGRA-D [Concomitant]
     Active Substance: FEXOFENADINE\PSEUDOEPHEDRINE
     Indication: SINUS DISORDER
     Dosage: 1 DF, 1D
     Route: 048
     Dates: start: 2000
  3. FLOVENT [Concomitant]
     Active Substance: FLUTICASONE PROPIONATE
     Indication: LUNG DISORDER
     Dosage: 110 MCG, 2 PUFF(S), BID
     Dates: start: 2005
  4. FLOVENT [Concomitant]
     Active Substance: FLUTICASONE PROPIONATE
     Indication: DYSPNOEA
  5. DYAZIDE [Suspect]
     Active Substance: HYDROCHLOROTHIAZIDE\TRIAMTERENE
     Indication: PRODUCT USED FOR UNKNOWN INDICATION
  6. PHENERGAN [Concomitant]
     Active Substance: PROMETHAZINE HYDROCHLORIDE
     Indication: CROHN^S DISEASE
     Dosage: 25 - 50 MG SUPPOSITORY, PRN
     Dates: start: 1996
  7. PHENERGAN [Concomitant]
     Active Substance: PROMETHAZINE HYDROCHLORIDE
     Indication: VOMITING
  8. NITROSTAT [Concomitant]
     Active Substance: NITROGLYCERIN
     Indication: CHEST PAIN
     Dosage: 0.4 MG, PRN
     Dates: start: 1990
  9. FLOVENT [Concomitant]
     Active Substance: FLUTICASONE PROPIONATE
     Indication: SINUS DISORDER
  10. EPIPEN [Concomitant]
     Active Substance: EPINEPHRINE
     Indication: ALLERGY TO ARTHROPOD STING
     Dosage: UNK
     Dates: start: 2006
  11. BUDESONIDE. [Concomitant]
     Active Substance: BUDESONIDE
     Indication: SINUS DISORDER
     Dosage: 0.6 MG, MIXES POWDER WITH DISTILLED WATER AND SQUEEZES INTO SINUES BID
  12. FUROSEMIDE TABLET [Concomitant]
     Indication: FLUID RETENTION
     Dosage: 20 - 40 MG AS DIRECTED
     Dates: start: 1973
  13. MAGNESIUM [Concomitant]
     Active Substance: MAGNESIUM
     Indication: CROHN^S DISEASE
     Dosage: 1 DF, BID
     Route: 048
     Dates: start: 1995
  14. MUCINEX TABLET [Concomitant]
     Indication: SINUS DISORDER
     Dosage: 600 MG, 1D PRN
     Dates: start: 2000
  15. ADVAIR HFA [Suspect]
     Active Substance: FLUTICASONE PROPIONATE\SALMETEROL XINAFOATE
     Indication: PRODUCT USED FOR UNKNOWN INDICATION
     Dosage: UNK
  16. CORGARD [Concomitant]
     Active Substance: NADOLOL
     Indication: CARDIAC FAILURE CONGESTIVE
     Dosage: 60 MG, 1D
     Route: 048
     Dates: start: 1989
  17. ZOFRAN [Concomitant]
     Active Substance: ONDANSETRON HYDROCHLORIDE
     Indication: CROHN^S DISEASE
     Dosage: 4 MG, PRN
     Dates: start: 2006

REACTIONS (3)
  - Drug intolerance [Unknown]
  - Ill-defined disorder [Unknown]
  - Drug hypersensitivity [Not Recovered/Not Resolved]

NARRATIVE: CASE EVENT DATE: 2006
